FAERS Safety Report 9583262 (Version 1)
Quarter: 2013Q4

REPORT INFORMATION
  Report Type: Spontaneous
  Country: FR (occurrence: FR)
  Receive Date: 20131002
  Receipt Date: 20131002
  Transmission Date: 20140711
  Serious: Yes (Other)
  Sender: FDA-Public Use
  Company Number: FR-ABBVIE-13P-056-1153672-00

PATIENT
  Age: 46 Year
  Sex: Female

DRUGS (1)
  1. ENANTONE [Suspect]
     Indication: PRODUCT USED FOR UNKNOWN INDICATION
     Dosage: POWDER AND SOLVENT FOR SOLUTION FOR INJECTION
     Dates: start: 2002, end: 2003

REACTIONS (3)
  - Arthralgia [Unknown]
  - Asthenia [Unknown]
  - Hot flush [Unknown]
